FAERS Safety Report 5089975-8 (Version None)
Quarter: 2006Q3

REPORT INFORMATION
  Report Type: 
  Country: None (occurrence: None)
  Receive Date: 20060823
  Receipt Date: 20060619
  Transmission Date: 20061208
  Serious: Yes (Other)
  Sender: FDA-Public Use
  Company Number: 2006029524

PATIENT
  Age: 30 Year
  Sex: Male

DRUGS (1)
  1. BEXTRA [Suspect]
     Indication: ILL-DEFINED DISORDER
     Dosage: 20 MG (20 MG, 1 IN 1 D)

REACTIONS (3)
  - ANGIONEUROTIC OEDEMA [None]
  - HYPERSENSITIVITY [None]
  - STEVENS-JOHNSON SYNDROME [None]
